FAERS Safety Report 23892643 (Version 1)
Quarter: 2024Q2

REPORT INFORMATION
  Report Type: Spontaneous
  Country: GB (occurrence: GB)
  Receive Date: 20240524
  Receipt Date: 20240524
  Transmission Date: 20240716
  Serious: Yes (Death, Other)
  Sender: FDA-Public Use
  Company Number: GB-CELLTRION INC.-2024GB011759

PATIENT

DRUGS (1)
  1. INFLIXIMAB [Suspect]
     Active Substance: INFLIXIMAB
     Indication: Colitis ulcerative
     Dosage: 120MG PRE FILLED PEN
     Route: 058
     Dates: start: 202403, end: 202405

REACTIONS (1)
  - Death [Fatal]
